FAERS Safety Report 19839860 (Version 3)
Quarter: 2021Q4

REPORT INFORMATION
  Report Type: Spontaneous
  Country: DE (occurrence: DE)
  Receive Date: 20210916
  Receipt Date: 20211011
  Transmission Date: 20220304
  Serious: No
  Sender: FDA-Public Use
  Company Number: DE-UCBSA-2021043130

PATIENT
  Age: 44 Year
  Sex: Male

DRUGS (11)
  1. LEVETIRACETAM [Suspect]
     Active Substance: LEVETIRACETAM
     Indication: Epilepsia partialis continua
     Dosage: 3000 MILLIGRAMS, DAILY
  2. CLOBAZAM [Suspect]
     Active Substance: CLOBAZAM
     Indication: Epilepsia partialis continua
     Dosage: UNKNOWN DOSE AND FREQUENCY
  3. GABAPENTIN [Suspect]
     Active Substance: GABAPENTIN
     Indication: Epilepsia partialis continua
     Dosage: UNKNOWN DOSE AND FREQUENCY
  4. METHSUXIMIDE [Suspect]
     Active Substance: METHSUXIMIDE
     Indication: Epilepsia partialis continua
     Dosage: UNKNOWN DOSE AND FREQUENCY
  5. PREGABALIN [Suspect]
     Active Substance: PREGABALIN
     Indication: Epilepsia partialis continua
     Dosage: 300 MILLIGRAMS, DAILY
  6. PHENYTOIN [Suspect]
     Active Substance: PHENYTOIN
     Indication: Epilepsia partialis continua
     Dosage: 100 MILLIGRAMS, DAILY
  7. VALPROATE [Suspect]
     Active Substance: VALPROIC ACID
     Indication: Epilepsia partialis continua
     Dosage: 2400 MILLIGRAMS, DAILY
  8. LAMOTRIGINE [Suspect]
     Active Substance: LAMOTRIGINE
     Indication: Epilepsia partialis continua
     Dosage: 50 MILLIGRAM, ONCE DAILY (QD)
  9. LAMOTRIGINE [Suspect]
     Active Substance: LAMOTRIGINE
     Dosage: 100 MILLIGRAMS, DAILY
  10. CLONAZEPAM [Suspect]
     Active Substance: CLONAZEPAM
     Indication: Epilepsia partialis continua
     Dosage: 3 MILLIGRAMS, DAILY
  11. PERAMPANEL [Concomitant]
     Active Substance: PERAMPANEL
     Indication: Product used for unknown indication
     Dosage: 6 MILLIGRAM, ONCE DAILY (QD)

REACTIONS (3)
  - Thrombocytopenia [Unknown]
  - Multiple-drug resistance [Unknown]
  - Product use in unapproved indication [Unknown]
